FAERS Safety Report 6832123-1 (Version None)
Quarter: 2010Q2

REPORT INFORMATION
  Report Type: 
  Country: None (occurrence: None)
  Receive Date: 20100618
  Receipt Date: 20100602
  Transmission Date: 20101027
  Serious: Yes (Hospitalization)
  Sender: FDA-Public Use
  Company Number: 20100507CINRY1477

PATIENT
  Age: 56 Year
  Sex: Female

DRUGS (5)
  1. CINRYZE [Suspect]
     Indication: HEREDITARY ANGIOEDEMA
     Dosage: 1500 UNIT, 1 IN 3 D, INTRAVENOUS
     Route: 042
     Dates: start: 20081201
  2. CINRYZE [Suspect]
     Indication: PROPHYLAXIS
     Dosage: 1500 UNIT, 1 IN 3 D, INTRAVENOUS
     Route: 042
     Dates: start: 20081201
  3. ANTIDEPRESSANT (ANTIDEPRESSANTS) [Suspect]
     Indication: DRUG USE FOR UNKNOWN INDICATION
     Dosage: TRANSDERMAL
     Route: 062
     Dates: start: 20100501
  4. HYDROCHLOROTHIAZIDE [Concomitant]
  5. ANTIDEPRESSANT (ANTIDEPRESSANTS) [Concomitant]

REACTIONS (6)
  - ABDOMINAL DISTENSION [None]
  - CHOLECYSTITIS ACUTE [None]
  - CHOLECYSTITIS CHRONIC [None]
  - CHOLELITHIASIS [None]
  - CONSTIPATION [None]
  - HEREDITARY ANGIOEDEMA [None]
